FAERS Safety Report 7959848-9 (Version None)
Quarter: 2011Q4

REPORT INFORMATION
  Report Type: 
  Country: None (occurrence: None)
  Receive Date: 20111206
  Receipt Date: 20111206
  Transmission Date: 20120403
  Serious: Yes (Hospitalization)
  Sender: FDA-Public Use
  Company Number: IT-SANOFI-AVENTIS-2011SA079711

PATIENT
  Age: 62 Year
  Sex: Female

DRUGS (7)
  1. ATENOLOL [Concomitant]
     Indication: TACHYCARDIA
  2. LEVOTHYROXINE SODIUM [Concomitant]
  3. ATORVASTATIN CALCIUM [Concomitant]
     Route: 048
  4. OPHTHALMOLOGICALS [Concomitant]
  5. PANTOPRAZOLE [Concomitant]
  6. RILUTEK [Suspect]
     Indication: AMYOTROPHIC LATERAL SCLEROSIS
     Route: 048
     Dates: start: 20110901
  7. ASPIRIN [Concomitant]

REACTIONS (1)
  - HYPERTENSION [None]
